FAERS Safety Report 5158292-X (Version None)
Quarter: 2006Q4

REPORT INFORMATION
  Report Type: 
  Country: None (occurrence: None)
  Receive Date: 20061128
  Receipt Date: 20061027
  Transmission Date: 20070319
  Serious: Yes (Other)
  Sender: FDA-Public Use
  Company Number: PHEH2006US13531

PATIENT
  Age: 63 Year
  Sex: Female
  Weight: 63.492 kg

DRUGS (7)
  1. DIOVAN HCT [Suspect]
     Dosage: 160MG VAL/25MG HCT, 1/2 TAB QD
     Route: 048
     Dates: start: 20060607
  2. DIOVAN HCT [Suspect]
     Dosage: 160MG VAL/12.5MG HCT, QD
  3. BONIVA [Concomitant]
     Indication: OSTEOPOROSIS
     Dosage: UNK, UNK
  4. CITRACAL [Concomitant]
     Dosage: 200MG, UNK
  5. CALCIUM [Concomitant]
     Dosage: 1 TAB, QD
  6. TUMS [Concomitant]
     Dosage: 500 MG, TID
  7. ASPIRIN [Concomitant]
     Dosage: 81 MG, QD

REACTIONS (11)
  - COMPUTERISED TOMOGRAM ABNORMAL [None]
  - CONDITION AGGRAVATED [None]
  - DRY MOUTH [None]
  - DYSARTHRIA [None]
  - DYSPHAGIA [None]
  - DYSPHONIA [None]
  - EPIGLOTTIC CYST [None]
  - PHARYNGEAL OEDEMA [None]
  - REFLUX OESOPHAGITIS [None]
  - THYROID NEOPLASM [None]
  - ULTRASOUND THYROID ABNORMAL [None]
